FAERS Safety Report 5261881-5 (Version None)
Quarter: 2007Q1

REPORT INFORMATION
  Report Type: 
  Country: None (occurrence: None)
  Receive Date: 20070310
  Receipt Date: 20070228
  Transmission Date: 20070707
  Serious: Yes (Hospitalization)
  Sender: FDA-Public Use
  Company Number: 2006UW25074

PATIENT
  Age: 649 Month
  Sex: Female
  Weight: 126.8 kg

DRUGS (7)
  1. SEROQUEL [Suspect]
     Indication: SLEEP DISORDER
     Route: 048
  2. RISPERDAL [Suspect]
  3. ABILIFY [Suspect]
  4. CLOZARIL [Concomitant]
  5. ZYPREXA [Concomitant]
  6. DEPAKOTE [Concomitant]
  7. LITHIUM CARBONATE [Concomitant]

REACTIONS (4)
  - CARDIAC FAILURE CONGESTIVE [None]
  - DIABETES MELLITUS [None]
  - PNEUMONIA [None]
  - RENAL FAILURE [None]
